FAERS Safety Report 5611254-8 (Version None)
Quarter: 2008Q1

REPORT INFORMATION
  Report Type: 
  Country: None (occurrence: None)
  Receive Date: 20080201
  Receipt Date: 20080130
  Transmission Date: 20080703
  Serious: Yes (Death, Hospitalization, Other)
  Sender: FDA-Public Use
  Company Number: PHHO2008ES01675

PATIENT
  Age: 65 Year
  Sex: Female

DRUGS (14)
  1. CYCLOSPORINE [Suspect]
     Indication: RENAL TRANSPLANT
     Dosage: 150 MG, QD
     Route: 048
     Dates: start: 20040220
  2. DACLIZUMAB [Suspect]
     Indication: RENAL TRANSPLANT
     Dosage: 200 MG, ONCE/SINGLE
     Dates: start: 20040219
  3. DACLIZUMAB [Suspect]
     Dosage: 100 MG, EVERY 2 WEEKS
     Dates: end: 20040304
  4. MYCOPHENOLATE MOFETIL [Suspect]
     Indication: RENAL TRANSPLANT
     Dosage: 1000 MG, Q12H
     Dates: start: 20040220
  5. PREDNISONE TAB [Suspect]
     Indication: RENAL TRANSPLANT
     Dosage: 20 MG, QD
     Route: 048
     Dates: start: 20040220
  6. SEPTRIN [Concomitant]
  7. MYCOSTATIN [Concomitant]
  8. CAOSINA [Concomitant]
  9. ARANESP [Concomitant]
  10. CLEXANE [Concomitant]
  11. TRANGOREX [Concomitant]
  12. LEXATIN [Concomitant]
  13. AMIODARONE [Concomitant]
  14. TENORMIN [Concomitant]

REACTIONS (16)
  - ARRHYTHMIA [None]
  - ATRIAL FIBRILLATION [None]
  - DIARRHOEA [None]
  - DISCOMFORT [None]
  - HAEMODYNAMIC INSTABILITY [None]
  - KIDNEY TRANSPLANT REJECTION [None]
  - LEUKOPENIA [None]
  - NEPHRECTOMY [None]
  - PERINEAL ABSCESS [None]
  - PYELONEPHRITIS [None]
  - PYREXIA [None]
  - SEPSIS [None]
  - TACHYCARDIA [None]
  - THROMBOCYTOPENIA [None]
  - VOMITING [None]
  - WEIGHT DECREASED [None]
